FAERS Safety Report 9883855 (Version 3)
Quarter: 2014Q2

REPORT INFORMATION
  Report Type: Spontaneous
  Country: US (occurrence: US)
  Receive Date: 20140210
  Receipt Date: 20140509
  Transmission Date: 20141212
  Serious: Yes (Hospitalization)
  Sender: FDA-Public Use
  Company Number: US-BAYER-2014-019074

PATIENT
  Age: 24 Year
  Sex: Female
  Weight: 99.77 kg

DRUGS (3)
  1. MIRENA [Suspect]
     Indication: CONTRACEPTION
     Dosage: 20 MCG/24HR, CONT
     Route: 015
     Dates: start: 20120619, end: 20120920
  2. FLEXERIL [Concomitant]
     Dosage: 10 MG, PRN
     Route: 048
  3. FIORINAL CODEINA [Concomitant]
     Dosage: UNK UNK, PRN
     Route: 048

REACTIONS (6)
  - Uterine perforation [None]
  - Device dislocation [None]
  - Device issue [None]
  - Emotional distress [None]
  - Injury [None]
  - Pain [None]
